FAERS Safety Report 15794735 (Version 2)
Quarter: 2019Q1

REPORT INFORMATION
  Report Type: Spontaneous
  Country: PT (occurrence: PT)
  Receive Date: 20190107
  Receipt Date: 20190109
  Transmission Date: 20190417
  Serious: Yes (Other)
  Sender: FDA-Public Use
  Company Number: PT-BAYER-2019-002224

PATIENT
  Age: 20 Year
  Sex: Female

DRUGS (1)
  1. ACETYLSALICYLIC ACID (} 100 MG) [Suspect]
     Active Substance: ASPIRIN
     Indication: MYOCARDITIS

REACTIONS (5)
  - Off label use [None]
  - Drug effective for unapproved indication [None]
  - Drug-induced liver injury [None]
  - Pulmonary embolism [None]
  - Pelvic venous thrombosis [None]
